FAERS Safety Report 24035932 (Version 1)
Quarter: 2024Q3

REPORT INFORMATION
  Report Type: Spontaneous
  Country: DE (occurrence: DE)
  Receive Date: 20240701
  Receipt Date: 20240701
  Transmission Date: 20241016
  Serious: Yes (Other)
  Sender: NOVARTIS
  Company Number: DE-SA-2024SA176575

PATIENT
  Age: 47 Year
  Sex: Female

DRUGS (11)
  1. VALSARTAN [Suspect]
     Active Substance: VALSARTAN
     Indication: Premedication
     Dosage: UNK
     Route: 065
  2. ACETAMINOPHEN\CAFFEINE\PROPYPHENAZONE [Suspect]
     Active Substance: ACETAMINOPHEN\CAFFEINE\PROPYPHENAZONE
     Indication: Hypersensitivity
     Dosage: UNK
     Route: 065
  3. CLEMASTINE FUMARATE [Suspect]
     Active Substance: CLEMASTINE FUMARATE
     Indication: Antiallergic therapy
     Dosage: UNK, HIGH DOSED
     Route: 065
  4. CLEMASTINE FUMARATE [Suspect]
     Active Substance: CLEMASTINE FUMARATE
     Indication: Hypersensitivity
     Dosage: UNK
     Route: 065
  5. PREDNISOLONE [Suspect]
     Active Substance: PREDNISOLONE
     Indication: Drug reaction with eosinophilia and systemic symptoms
     Dosage: 1 MG/KG SHOT
     Route: 065
  6. PREDNISOLONE [Suspect]
     Active Substance: PREDNISOLONE
     Indication: Hypersensitivity
     Dosage: UNK, DOSE REDUCTION TO {1 MG/KG BODY WEIGHT
     Route: 065
  7. PREDNISOLONE [Suspect]
     Active Substance: PREDNISOLONE
     Dosage: UNK
     Route: 065
  8. PREDNISOLONE [Suspect]
     Active Substance: PREDNISOLONE
     Dosage: 1.5 MG/KG, INCREASED
     Route: 065
  9. PREDNISOLONE [Suspect]
     Active Substance: PREDNISOLONE
     Dosage: 0.8 MG/KG, REDUCED AT DISCHARGE
     Route: 065
  10. IBUPROFEN [Suspect]
     Active Substance: IBUPROFEN
     Indication: Hand-foot-and-mouth disease
     Dosage: UNK
     Route: 065
  11. ACETAMINOPHEN [Concomitant]
     Active Substance: ACETAMINOPHEN
     Indication: Hand-foot-and-mouth disease
     Dosage: UNK
     Route: 065

REACTIONS (21)
  - Erythema [Unknown]
  - Dysuria [Unknown]
  - Pyrexia [Unknown]
  - Macule [Unknown]
  - Interstitial lung disease [Unknown]
  - Abdominal pain [Unknown]
  - Splenomegaly [Unknown]
  - Drug reaction with eosinophilia and systemic symptoms [Unknown]
  - Condition aggravated [Unknown]
  - Syncope [Unknown]
  - Eosinophilia [Unknown]
  - Swelling of eyelid [Unknown]
  - Lymphadenopathy [Unknown]
  - Swelling face [Unknown]
  - Cholecystitis [Unknown]
  - Proteinuria [Unknown]
  - Rash maculo-papular [Unknown]
  - Scab [Unknown]
  - Hepatomegaly [Unknown]
  - Cytomegalovirus infection [Unknown]
  - Staphylococcal infection [Recovered/Resolved]
